FAERS Safety Report 24014129 (Version 1)
Quarter: 2024Q2

REPORT INFORMATION
  Report Type: Report from Study
  Country: SI (occurrence: SI)
  Receive Date: 20240626
  Receipt Date: 20240626
  Transmission Date: 20240715
  Serious: Yes (Life-Threatening, Other)
  Sender: FDA-Public Use
  Company Number: SI-TAKEDA-2024TUS063248

PATIENT

DRUGS (1)
  1. VEDOLIZUMAB [Suspect]
     Active Substance: VEDOLIZUMAB
     Indication: Inflammatory bowel disease
     Dosage: UNK
     Route: 065
     Dates: start: 20220818, end: 20220818

REACTIONS (2)
  - Upper respiratory tract infection [Recovering/Resolving]
  - Inflammatory bowel disease [Unknown]

NARRATIVE: CASE EVENT DATE: 20220909
